FAERS Safety Report 14625430 (Version 1)
Quarter: 2018Q1

REPORT INFORMATION
  Report Type: Spontaneous
  Country: US (occurrence: US)
  Receive Date: 20180312
  Receipt Date: 20180312
  Transmission Date: 20180509
  Serious: No
  Sender: FDA-Public Use
  Company Number: US-ALLERGAN-1771189US

PATIENT
  Sex: Female

DRUGS (4)
  1. OXYTROL [Suspect]
     Active Substance: OXYBUTYNIN
     Dosage: 3.9 MG
     Route: 062
     Dates: start: 20171204
  2. OXYTROL [Suspect]
     Active Substance: OXYBUTYNIN
     Indication: HYPERTONIC BLADDER
     Dosage: 3.9 MG
     Route: 062
     Dates: start: 20171130
  3. TROSPIUM [Concomitant]
     Active Substance: TROSPIUM
     Indication: HYPERTONIC BLADDER
     Dosage: UNK
     Route: 048
  4. OXYTROL [Suspect]
     Active Substance: OXYBUTYNIN
     Dosage: 3.9 MG
     Route: 062
     Dates: start: 20171207

REACTIONS (3)
  - Hypersensitivity [Unknown]
  - Rash pruritic [Unknown]
  - Rash [Unknown]

NARRATIVE: CASE EVENT DATE: 201712
